FAERS Safety Report 7061077-0 (Version None)
Quarter: 2010Q4

REPORT INFORMATION
  Report Type: 
  Country: None (occurrence: None)
  Receive Date: 20101026
  Receipt Date: 20101019
  Transmission Date: 20110411
  Serious: Yes (Other)
  Sender: FDA-Public Use
  Company Number: AU-PFIZER INC-2010134061

PATIENT
  Age: 48 Year
  Sex: Male

DRUGS (1)
  1. CHAMPIX [Suspect]
     Indication: SMOKING CESSATION THERAPY
     Dosage: UNK
     Dates: start: 20100101

REACTIONS (3)
  - AGGRESSION [None]
  - PHYSICAL ABUSE [None]
  - VERBAL ABUSE [None]
